FAERS Safety Report 16462341 (Version 9)
Quarter: 2021Q1

REPORT INFORMATION
  Report Type: Spontaneous
  Country: US (occurrence: US)
  Receive Date: 20190621
  Receipt Date: 20210106
  Transmission Date: 20210419
  Serious: Yes (Other)
  Sender: FDA-Public Use
  Company Number: US-PFIZER INC-2019265173

PATIENT
  Age: 78 Year
  Sex: Female
  Weight: 79 kg

DRUGS (2)
  1. BOSULIF [Suspect]
     Active Substance: BOSUTINIB MONOHYDRATE
     Dosage: 200 MG, ONCE DAILY
  2. BOSULIF [Suspect]
     Active Substance: BOSUTINIB MONOHYDRATE
     Indication: CHRONIC MYELOID LEUKAEMIA (IN REMISSION)
     Dosage: 200 MG, DAILY (2 OF 100MG)

REACTIONS (6)
  - Urinary incontinence [Unknown]
  - Amnesia [Unknown]
  - Memory impairment [Recovering/Resolving]
  - Dementia [Unknown]
  - Weight fluctuation [Unknown]
  - Malaise [Unknown]
